FAERS Safety Report 4757716-7 (Version None)
Quarter: 2005Q3

REPORT INFORMATION
  Report Type: 
  Country: None (occurrence: None)
  Receive Date: 20050831
  Receipt Date: 20050825
  Transmission Date: 20060218
  Serious: Yes (Hospitalization)
  Sender: FDA-Public Use
  Company Number: PHEH2005US09526

PATIENT
  Age: 92 Year
  Sex: Female
  Weight: 66 kg

DRUGS (1)
  1. ZOMETA [Suspect]
     Indication: PRECURSOR T-LYMPHOBLASTIC LYMPHOMA/LEUKAEMIA
     Dosage: 4 MG IV X 1
     Route: 042
     Dates: start: 20050803, end: 20050803

REACTIONS (1)
  - TRANSIENT ISCHAEMIC ATTACK [None]
